FAERS Safety Report 9637598 (Version 1)
Quarter: 2013Q4

REPORT INFORMATION
  Report Type: Report from Study
  Country: CA (occurrence: CA)
  Receive Date: 20131022
  Receipt Date: 20131022
  Transmission Date: 20140711
  Serious: Yes (Life-Threatening)
  Sender: FDA-Public Use
  Company Number: CA-JNJFOC-20131012344

PATIENT
  Age: 53 Year
  Sex: Female
  Weight: 137 kg

DRUGS (2)
  1. REMICADE [Suspect]
     Indication: PSORIATIC ARTHROPATHY
     Route: 042
     Dates: start: 20130210, end: 20131018
  2. METHOTREXATE [Concomitant]
     Route: 058

REACTIONS (3)
  - Tremor [Unknown]
  - Dysphemia [Unknown]
  - Anxiety [Unknown]
